FAERS Safety Report 24067876 (Version 1)
Quarter: 2024Q3

REPORT INFORMATION
  Report Type: Spontaneous
  Country: US (occurrence: US)
  Receive Date: 20240710
  Receipt Date: 20240710
  Transmission Date: 20241017
  Serious: No
  Sender: ALMUS
  Company Number: US-ALMIRALL-US-2024-1597

PATIENT
  Age: 68 Year
  Sex: Female

DRUGS (1)
  1. KLISYRI [Suspect]
     Active Substance: TIRBANIBULIN
     Indication: Actinic keratosis
     Dosage: 4 DAYS AT BEDTIME
     Route: 061

REACTIONS (5)
  - Paradoxical drug reaction [Unknown]
  - Discomfort [Unknown]
  - Condition aggravated [Unknown]
  - Application site pain [Unknown]
  - Application site exfoliation [Recovering/Resolving]

NARRATIVE: CASE EVENT DATE: 20240601
